FAERS Safety Report 6720111-5 (Version None)
Quarter: 2010Q2

REPORT INFORMATION
  Report Type: 
  Country: None (occurrence: None)
  Receive Date: 20100511
  Receipt Date: 20100503
  Transmission Date: 20101027
  Serious: Yes (Death)
  Sender: FDA-Public Use
  Company Number: US-SANOFI-AVENTIS-2010SA011761

PATIENT
  Age: 81 Year
  Sex: Male
  Weight: 58 kg

DRUGS (29)
  1. MULTAQ [Suspect]
     Indication: ATRIAL FIBRILLATION
     Route: 048
     Dates: start: 20100226, end: 20100228
  2. ARANESP [Concomitant]
  3. CALCIUM CARBONATE [Concomitant]
     Indication: ANTACID THERAPY
     Dates: end: 20100226
  4. FLORINEF [Concomitant]
     Indication: TRANSPLANT REJECTION
     Route: 048
     Dates: start: 20100225, end: 20100302
  5. INSULIN [Concomitant]
     Indication: BLOOD GLUCOSE INCREASED
  6. POTASSIUM [Concomitant]
  7. MAGNESIUM [Concomitant]
  8. KEPPRA [Concomitant]
     Indication: CONVULSION PROPHYLAXIS
     Route: 048
     Dates: start: 20100225, end: 20100226
  9. POTASSIUM PHOSPHATES [Concomitant]
  10. LEVOXYL [Concomitant]
     Indication: HYPOTHYROIDISM
     Dates: end: 20100226
  11. MULTI-VITAMINS [Concomitant]
     Route: 048
     Dates: start: 20100225, end: 20100228
  12. PREDNISONE [Concomitant]
     Indication: TRANSPLANT REJECTION
     Route: 048
     Dates: start: 20100225, end: 20100301
  13. PROGRAF [Concomitant]
     Indication: TRANSPLANT REJECTION
     Route: 048
     Dates: start: 20100225, end: 20100303
  14. PROTONIX [Concomitant]
  15. OMEPRAZOLE [Concomitant]
     Indication: STRESS ULCER
     Route: 048
     Dates: start: 20100225, end: 20100303
  16. HEPARIN [Concomitant]
     Indication: ANTICOAGULANT THERAPY
     Dosage: 50 UNITS/ML
     Route: 042
     Dates: start: 20100225, end: 20100228
  17. WARFARIN [Concomitant]
     Indication: ANTICOAGULANT THERAPY
     Dosage: VARIED DOSE
     Route: 065
     Dates: start: 20100225, end: 20100302
  18. MORPHINE [Concomitant]
  19. VITAMIN K TAB [Concomitant]
  20. ONDANSETRON [Concomitant]
  21. CALCIUM ACETATE [Concomitant]
  22. ALPRAZOLAM [Concomitant]
  23. DILTIAZEM HCL [Concomitant]
  24. DIPHENHYDRAMINE [Concomitant]
  25. LEVALBUTEROL HYDROCHLORIDE [Concomitant]
  26. LORAZEPAM [Concomitant]
  27. PROCHLORPERAZINE [Concomitant]
  28. ACETAMINOPHEN [Concomitant]
     Route: 048
     Dates: start: 20100225, end: 20100228
  29. METOPROLOL TARTRATE [Concomitant]
     Route: 048
     Dates: start: 20100225, end: 20100226

REACTIONS (3)
  - BLOOD CREATININE INCREASED [None]
  - CONDITION AGGRAVATED [None]
  - ELECTROCARDIOGRAM QRS COMPLEX PROLONGED [None]
